FAERS Safety Report 18476167 (Version 1)
Quarter: 2020Q4

REPORT INFORMATION
  Report Type: Spontaneous
  Country: TR (occurrence: TR)
  Receive Date: 20201107
  Receipt Date: 20201107
  Transmission Date: 20210114
  Serious: Yes (Hospitalization, Other)
  Sender: FDA-Public Use
  Company Number: TR-LUPIN PHARMACEUTICALS INC.-2020-08500

PATIENT
  Age: 33 Year
  Sex: Female

DRUGS (4)
  1. DORNASE ALFA. [Concomitant]
     Active Substance: DORNASE ALFA
     Indication: COVID-19
     Dosage: UNK
     Route: 065
  2. FAVIPIRAVIR [Concomitant]
     Active Substance: FAVIPIRAVIR
     Indication: COVID-19
     Dosage: UNK
     Route: 065
  3. HYDROXYCHLOROQUINE [Suspect]
     Active Substance: HYDROXYCHLOROQUINE
     Indication: COVID-19
     Dosage: UNK
     Route: 065
  4. TAMOXIFEN [Concomitant]
     Active Substance: TAMOXIFEN
     Indication: BREAST CANCER
     Dosage: UNK
     Route: 065

REACTIONS (1)
  - Off label use [Unknown]
